FAERS Safety Report 9172787 (Version 1)
Quarter: 2012Q4

REPORT INFORMATION
  Report Type: 
  Country: DE (occurrence: DE)
  Receive Date: 20120911
  Receipt Date: 20120911
  Transmission Date: 20130627
  Serious: Yes (Other)
  Sender: FDA-Public Use
  Company Number: PHHY2012DE074327

PATIENT
  Sex: Female
  Weight: 132 kg

DRUGS (6)
  1. RASILAMLO [Suspect]
     Indication: HYPERTENSION
     Dosage: 1 DF (150 mg alis and 5 mg amlo), UNK
     Route: 048
  2. EXFORGE HCT [Suspect]
     Indication: HYPERTENSION
     Dosage: 1 DF (160 mg vals, 10 mg amlo and 25 mg HCTZ), UNK
     Route: 048
  3. AMLODIPINE [Suspect]
     Indication: HYPERTENSION
     Dosage: 5 mg, UNK
     Route: 048
     Dates: start: 20120111, end: 20120111
  4. RAMIPRIL [Suspect]
     Indication: HYPERTENSION
     Dosage: 2.5 mg, UNK
     Route: 048
  5. MICARDIS [Suspect]
     Indication: HYPERTENSION
     Route: 048
  6. THYRONAJOD [Concomitant]
     Indication: GOITRE
     Dosage: 50 mg, UNK
     Route: 048

REACTIONS (2)
  - Lip swelling [Recovered/Resolved]
  - Paraesthesia oral [Recovered/Resolved]
